FAERS Safety Report 5254473-5 (Version None)
Quarter: 2007Q1

REPORT INFORMATION
  Report Type: 
  Country: None (occurrence: None)
  Receive Date: 20070302
  Receipt Date: 20070220
  Transmission Date: 20070707
  Serious: Yes (Hospitalization, Other)
  Sender: FDA-Public Use
  Company Number: BE-PFIZER INC-2006147148

PATIENT
  Sex: Male
  Weight: 79.4 kg

DRUGS (12)
  1. LYRICA [Suspect]
     Indication: DIABETIC NEUROPATHY
     Route: 048
     Dates: start: 20061018, end: 20061110
  2. LYRICA [Suspect]
     Indication: PERIPHERAL SENSORY NEUROPATHY
  3. ALLOPURINOL [Concomitant]
     Dosage: DAILY DOSE:150MG
     Route: 048
  4. ATACAND [Concomitant]
     Dosage: DAILY DOSE:8MG
     Route: 048
  5. EMCONCOR [Concomitant]
     Route: 048
  6. CANRENOL [Concomitant]
     Route: 048
  7. LANOXIN [Concomitant]
     Dosage: DAILY DOSE:.125
     Route: 048
  8. MARCUMAR [Concomitant]
     Route: 048
  9. BURINEX [Concomitant]
     Route: 048
  10. LEVOTHYROXINE SODIUM [Concomitant]
     Dosage: DAILY DOSE:12.5MCG
     Route: 048
  11. SOTALOL HCL [Concomitant]
     Route: 048
  12. CORDARONE [Concomitant]
     Route: 048

REACTIONS (12)
  - ARRHYTHMIA [None]
  - ASPIRATION [None]
  - EPISTAXIS [None]
  - HYPOAESTHESIA [None]
  - MYOCARDIAL INFARCTION [None]
  - PSEUDOMONAS INFECTION [None]
  - PULMONARY OEDEMA [None]
  - PYREXIA [None]
  - RENAL FAILURE ACUTE [None]
  - SEPTIC SHOCK [None]
  - THROMBOCYTOPENIA [None]
  - VENTRICULAR TACHYCARDIA [None]
